FAERS Safety Report 4699719-7 (Version None)
Quarter: 2005Q2

REPORT INFORMATION
  Report Type: 
  Country: None (occurrence: None)
  Receive Date: 20050623
  Receipt Date: 20050607
  Transmission Date: 20051028
  Serious: Yes (Other)
  Sender: FDA-Public Use
  Company Number: DSA_26635_2005

PATIENT
  Age: 79 Year
  Sex: Female

DRUGS (4)
  1. DILTIAZEM [Suspect]
     Indication: HYPERTENSION
     Dosage: DF
     Dates: end: 20010405
  2. AMIODARONE HCL [Suspect]
     Indication: ARRHYTHMIA
     Dosage: DF
     Dates: end: 20010504
  3. ATORVASTATIN CALCIUM [Suspect]
     Indication: METABOLIC DISORDER
     Dosage: 20 MG Q DAY
     Dates: end: 20010405
  4. FERRO-GRADUMET             /AUS/ [Suspect]
     Dosage: 1 DF Q DAY
     Dates: end: 20010405

REACTIONS (4)
  - COORDINATION ABNORMAL [None]
  - NAUSEA [None]
  - NEUROPATHY PERIPHERAL [None]
  - ORTHOSTATIC HYPOTENSION [None]
